FAERS Safety Report 11615615 (Version 1)
Quarter: 2015Q4

REPORT INFORMATION
  Report Type: Spontaneous
  Country: AT (occurrence: AT)
  Receive Date: 20151009
  Receipt Date: 20151009
  Transmission Date: 20160304
  Serious: Yes (Hospitalization, Other)
  Sender: FDA-Public Use
  Company Number: AT-ACTAVIS-2015-21405

PATIENT
  Age: 63 Year
  Sex: Female

DRUGS (3)
  1. PHYSIOLOGICAL SALINE SOLUTION [Concomitant]
     Active Substance: SODIUM CHLORIDE
     Indication: PRODUCT USED FOR UNKNOWN INDICATION
     Dosage: UNK
     Route: 042
  2. EPIRUBICIN [Suspect]
     Active Substance: EPIRUBICIN
     Indication: BREAST CANCER
     Dosage: FIRST CYCLE, STOPPED TOWARDS THE END
     Route: 042
  3. CYCLOPHOSPHAMIDE. [Concomitant]
     Active Substance: CYCLOPHOSPHAMIDE
     Indication: BREAST CANCER
     Dosage: 932 MG, FIRST CHEMOTHERAPY CYCLE
     Route: 042

REACTIONS (9)
  - Injection site necrosis [Recovered/Resolved]
  - Feeling hot [Recovered/Resolved]
  - Mobility decreased [Recovered/Resolved]
  - Breast pain [Recovered/Resolved]
  - Skin discolouration [Recovered/Resolved]
  - Extravasation [Recovered/Resolved]
  - Application site oedema [Recovered/Resolved]
  - Pain in extremity [Recovered/Resolved]
  - Blister [Recovered/Resolved]
